FAERS Safety Report 9276988 (Version 2)
Quarter: 2013Q3

REPORT INFORMATION
  Report Type: Spontaneous
  Country: US (occurrence: None)
  Receive Date: 20130501
  Receipt Date: 20130716
  Transmission Date: 20140515
  Serious: No
  Sender: FDA-Public Use
  Company Number: 2013P1005073

PATIENT
  Age: 68 Year
  Sex: Male

DRUGS (3)
  1. INFUMORPH [Suspect]
     Indication: PAIN
     Dates: start: 20130306
  2. INFUMORPH [Suspect]
     Indication: POST LAMINECTOMY SYNDROME
     Dates: start: 20130306
  3. BUPIVACAINE [Suspect]

REACTIONS (4)
  - Surgical procedure repeated [None]
  - Fall [None]
  - Pain [None]
  - Medical device complication [None]
